FAERS Safety Report 15252910 (Version 1)
Quarter: 2018Q3

REPORT INFORMATION
  Report Type: Spontaneous
  Country: US (occurrence: US)
  Receive Date: 20180807
  Receipt Date: 20180807
  Transmission Date: 20181010
  Serious: No
  Sender: FDA-Public Use
  Company Number: US-RADIUS HEALTH INC.-2018US000809

PATIENT
  Sex: Female
  Weight: 79.82 kg

DRUGS (1)
  1. TYMLOS [Suspect]
     Active Substance: ABALOPARATIDE
     Indication: OSTEOPOROSIS POSTMENOPAUSAL
     Dosage: 80 MCG, QD
     Route: 058
     Dates: start: 201804

REACTIONS (5)
  - Nausea [Unknown]
  - Headache [Unknown]
  - Multiple allergies [Unknown]
  - Tremor [Unknown]
  - Diarrhoea [Unknown]
